FAERS Safety Report 24001871 (Version 1)
Quarter: 2024Q2

REPORT INFORMATION
  Report Type: Spontaneous
  Country: US (occurrence: US)
  Receive Date: 20240622
  Receipt Date: 20240622
  Transmission Date: 20240716
  Serious: Yes (Other)
  Sender: FDA-Public Use
  Company Number: US-VANTIVE-2024VAN017649

PATIENT
  Sex: Female
  Weight: 71 kg

DRUGS (2)
  1. EXTRANEAL [Suspect]
     Active Substance: CALCIUM CHLORIDE\ICODEXTRIN\MAGNESIUM CHLORIDE\SODIUM CHLORIDE\SODIUM LACTATE
     Route: 033
  2. CEFTAZIDIME [Suspect]
     Active Substance: CEFTAZIDIME
     Dosage: 2 GRAMS
     Route: 033
     Dates: end: 20240607

REACTIONS (6)
  - Peritoneal cloudy effluent [Recovering/Resolving]
  - Adverse drug reaction [Unknown]
  - Incorrect dose administered [Recovered/Resolved]
  - Product distribution issue [Recovered/Resolved]
  - Bacterial infection [Recovering/Resolving]
  - Abdominal pain [Recovering/Resolving]
